FAERS Safety Report 6596353-9 (Version None)
Quarter: 2010Q1

REPORT INFORMATION
  Report Type: 
  Country: None (occurrence: None)
  Receive Date: 20100223
  Receipt Date: 20100212
  Transmission Date: 20100710
  Serious: Yes (Other)
  Sender: FDA-Public Use
  Company Number: TR-ELI_LILLY_AND_COMPANY-TR201002003968

PATIENT

DRUGS (4)
  1. HUMULIN R [Suspect]
     Indication: GESTATIONAL DIABETES
     Dosage: 6 U, EACH MORNING
     Route: 058
     Dates: start: 20100104
  2. HUMULIN R [Suspect]
     Dosage: 4 U, NOON
     Route: 058
  3. HUMULIN R [Suspect]
     Dosage: 4 U, EACH EVENING
     Route: 058
  4. HUMULIN N [Suspect]
     Indication: GESTATIONAL DIABETES
     Dosage: 5 U, EACH EVENING
     Route: 058
     Dates: start: 20100104

REACTIONS (2)
  - DRUG EXPOSURE DURING PREGNANCY [None]
  - ULTRASOUND ANTENATAL SCREEN ABNORMAL [None]
